FAERS Safety Report 6224356-2 (Version None)
Quarter: 2009Q2

REPORT INFORMATION
  Report Type: 
  Country: None (occurrence: None)
  Receive Date: 20090612
  Receipt Date: 20090603
  Transmission Date: 20091009
  Serious: Yes (Other)
  Sender: FDA-Public Use
  Company Number: US-JNJCH-2009015377

PATIENT
  Age: 66 Year
  Sex: Female
  Weight: 57.2 kg

DRUGS (3)
  1. LISTERINE WHITENING QUICK DISSOLVING STRIPS [Suspect]
     Indication: DENTAL CARE
     Dosage: TEXT:2 STRIPS, 2X ON 1ST DAY AND 1X 2ND DAY
     Route: 048
     Dates: start: 20090528, end: 20090529
  2. IBANDRONATE SODIUM [Concomitant]
     Indication: BONE DISORDER
     Dosage: TEXT:ONCE A MONTH
     Route: 065
  3. NORVASC [Concomitant]
     Indication: HYPERTENSION
     Dosage: TEXT:5MG ONCE A DAY
     Route: 065

REACTIONS (4)
  - BURNING SENSATION [None]
  - LIP SWELLING [None]
  - PARAESTHESIA ORAL [None]
  - STOMATITIS [None]
